FAERS Safety Report 24717884 (Version 1)
Quarter: 2024Q4

REPORT INFORMATION
  Report Type: Report from Study
  Country: IN (occurrence: IN)
  Receive Date: 20241210
  Receipt Date: 20241210
  Transmission Date: 20250115
  Serious: Yes (Other)
  Sender: BAYER HEALTHCARE PHARMACEUTICALS INC.
  Company Number: IN-BAYER-2024A173431

PATIENT

DRUGS (1)
  1. SORAFENIB [Suspect]
     Active Substance: SORAFENIB
     Indication: Acute myeloid leukaemia refractory
     Dosage: UNK

REACTIONS (3)
  - Pancytopenia [None]
  - Product use issue [None]
  - Product use in unapproved indication [None]
